FAERS Safety Report 24756525 (Version 2)
Quarter: 2024Q4

REPORT INFORMATION
  Report Type: Report from Study
  Country: US (occurrence: US)
  Receive Date: 20241220
  Receipt Date: 20241229
  Transmission Date: 20250115
  Serious: Yes (Death, Other)
  Sender: AMNEAL
  Company Number: US-AMNEAL PHARMACEUTICALS-2024-AMRX-04566

PATIENT
  Sex: Male
  Weight: 45.351 kg

DRUGS (1)
  1. CARBIDOPA\LEVODOPA [Suspect]
     Active Substance: CARBIDOPA\LEVODOPA
     Indication: Product used for unknown indication
     Dosage: (145/36.25 MG) 2 CAPSULES, 4 /DAY
     Route: 048

REACTIONS (1)
  - Parkinson^s disease [Fatal]
